FAERS Safety Report 8881274 (Version 2)
Quarter: 2012Q4

REPORT INFORMATION
  Report Type: 
  Country: ES (occurrence: ES)
  Receive Date: 20121031
  Receipt Date: 20121102
  Transmission Date: 20130627
  Serious: Yes (Hospitalization)
  Sender: FDA-Public Use
  Company Number: ES-ELI_LILLY_AND_COMPANY-ES201210005725

PATIENT
  Sex: Female

DRUGS (10)
  1. FORSTEO [Suspect]
     Indication: OSTEOPOROSIS
     Dosage: 20 ug, UNK
     Route: 058
     Dates: start: 20121002
  2. FORSTEO [Suspect]
     Dosage: 20 ug, qd
     Route: 058
     Dates: start: 20121017
  3. LORMETAZEPAM [Concomitant]
     Indication: INSOMNIA
     Dosage: 2 mg, UNK
     Route: 048
  4. DEPRAX [Concomitant]
     Indication: INSOMNIA
     Dosage: 100 mg, UNK
     Route: 048
  5. RISPERDAL [Concomitant]
     Dosage: UNK, qd
     Route: 048
  6. TRIFLUSAL [Concomitant]
     Dosage: 300 mg, UNK
     Route: 048
  7. SERTRALINA [Concomitant]
     Dosage: 50 mg, qd
     Route: 048
  8. ANGIODROX [Concomitant]
     Dosage: 90 mg, qd
     Route: 048
  9. GLIMEPIRID [Concomitant]
     Indication: DIABETES MELLITUS
     Dosage: 4 mg, UNK
     Route: 048
  10. COMPETACT [Concomitant]
     Indication: DIABETES MELLITUS
     Dosage: UNK, bid
     Route: 048

REACTIONS (4)
  - Pancreatitis [Unknown]
  - Cholelithiasis [Not Recovered/Not Resolved]
  - Urinary tract obstruction [Not Recovered/Not Resolved]
  - Calculus urinary [Not Recovered/Not Resolved]
